FAERS Safety Report 9753670 (Version 1)
Quarter: 2013Q4

REPORT INFORMATION
  Report Type: Spontaneous
  Country: US (occurrence: US)
  Receive Date: 20131213
  Receipt Date: 20131213
  Transmission Date: 20140711
  Serious: No
  Sender: FDA-Public Use
  Company Number: US-GILEAD-2009-0026029

PATIENT
  Sex: Female
  Weight: 47.63 kg

DRUGS (9)
  1. LETAIRIS [Suspect]
     Indication: PULMONARY ARTERIAL HYPERTENSION
     Route: 048
     Dates: start: 20091028
  2. ASTELIN [Concomitant]
  3. PREDNISONE [Concomitant]
  4. ZYRTEC-D [Concomitant]
  5. ADVAIR [Concomitant]
  6. OMEGA 3 [Concomitant]
  7. XOPENEX [Concomitant]
  8. FLAXSEED [Concomitant]
  9. SHAKLEE CINCH VANILLA [Concomitant]

REACTIONS (1)
  - Local swelling [Unknown]
